FAERS Safety Report 24014645 (Version 1)
Quarter: 2024Q2

REPORT INFORMATION
  Report Type: Spontaneous
  Country: US (occurrence: None)
  Receive Date: 20240625
  Receipt Date: 20240625
  Transmission Date: 20240716
  Serious: Yes (Other)
  Sender: FDA-Public Use
  Company Number: None

PATIENT
  Age: 41 Year
  Sex: Female

DRUGS (2)
  1. INFED [Suspect]
     Active Substance: IRON DEXTRAN
     Indication: Iron deficiency anaemia
     Dosage: 10 MG ONCE INTRAVENOUS ?
     Route: 042
     Dates: start: 20240614, end: 20240614
  2. Pantoprazole 40 mg daily [Concomitant]

REACTIONS (5)
  - Back pain [None]
  - Pain in extremity [None]
  - Dyspnoea [None]
  - Chest pain [None]
  - Infusion related reaction [None]

NARRATIVE: CASE EVENT DATE: 20240614
